FAERS Safety Report 21746852 (Version 1)
Quarter: 2022Q4

REPORT INFORMATION
  Report Type: Spontaneous
  Country: US (occurrence: None)
  Receive Date: 20221216
  Receipt Date: 20221216
  Transmission Date: 20230112
  Serious: Yes (Other)
  Sender: FDA-Public Use
  Company Number: None

PATIENT
  Sex: Male

DRUGS (9)
  1. PULMOZYME [Suspect]
     Active Substance: DORNASE ALFA
  2. ADVAIR DISKU AER [Concomitant]
  3. ALBUTEROL [Concomitant]
     Active Substance: ALBUTEROL
  4. BREO ELLIPTA INH [Concomitant]
  5. CAYSTON INH [Concomitant]
  6. HYPERSAL NEB [Concomitant]
  7. PREDNISONE [Concomitant]
     Active Substance: PREDNISONE
  8. TRIKAFTA [Concomitant]
     Active Substance: ELEXACAFTOR\IVACAFTOR\TEZACAFTOR
  9. VITAMIN D3 DRO [Concomitant]

REACTIONS (1)
  - Nephrolithiasis [None]
